FAERS Safety Report 23397660 (Version 1)
Quarter: 2024Q1

REPORT INFORMATION
  Report Type: Spontaneous
  Country: JP (occurrence: JP)
  Receive Date: 20240112
  Receipt Date: 20240112
  Transmission Date: 20240410
  Serious: Yes (Death, Other)
  Sender: FDA-Public Use
  Company Number: JP-GILEAD-2023-0649255

PATIENT
  Age: 92 Year
  Sex: Female

DRUGS (5)
  1. VEKLURY [Suspect]
     Active Substance: REMDESIVIR
     Indication: COVID-19
     Dosage: UNK
     Route: 041
     Dates: start: 20231014, end: 20231019
  2. YD SOLITA T NO.3G [Concomitant]
     Dosage: UNK
  3. SOLDEM 3A [Concomitant]
     Active Substance: CARBOHYDRATES\POTASSIUM CHLORIDE\SODIUM CHLORIDE\SODIUM LACTATE
     Dosage: UNK
  4. FUROSEMIDE [Concomitant]
     Active Substance: FUROSEMIDE
     Dosage: UNK
  5. SILVER SULFADIAZINE [Concomitant]
     Active Substance: SILVER SULFADIAZINE
     Dosage: UNK

REACTIONS (5)
  - Cardiac failure chronic [Fatal]
  - Infusion site extravasation [Unknown]
  - Purpura [Unknown]
  - Blister [Unknown]
  - Skin ulcer [Unknown]

NARRATIVE: CASE EVENT DATE: 20231001
